FAERS Safety Report 12232394 (Version 1)
Quarter: 2016Q2

REPORT INFORMATION
  Report Type: Spontaneous
  Country: TR (occurrence: TR)
  Receive Date: 20160401
  Receipt Date: 20160401
  Transmission Date: 20160815
  Serious: Yes (Hospitalization, Other)
  Sender: FDA-Public Use
  Company Number: TR-BAYER-2016-058346

PATIENT
  Age: 24 Year
  Sex: Female

DRUGS (2)
  1. GLICLAZIDE [Interacting]
     Active Substance: GLICLAZIDE
     Dosage: 240 DF, UNK
     Route: 048
  2. ACETYLSALICYLIC ACID({=100 MG) [Suspect]
     Active Substance: ASPIRIN
     Dosage: DAILY DOSE 3600 MG
     Route: 048

REACTIONS (5)
  - Hypoglycaemia [None]
  - Labelled drug-drug interaction medication error [None]
  - Toxicity to various agents [None]
  - Suicide attempt [None]
  - Overdose [None]
